FAERS Safety Report 9127363 (Version 1)
Quarter: 2013Q1

REPORT INFORMATION
  Report Type: Spontaneous
  Country: US (occurrence: US)
  Receive Date: 20130228
  Receipt Date: 20130228
  Transmission Date: 20140127
  Serious: No
  Sender: FDA-Public Use
  Company Number: US-GLAXOSMITHKLINE-A0971217A

PATIENT
  Sex: 0

DRUGS (4)
  1. LAMICTAL [Suspect]
     Indication: DRUG INTERACTION
     Dosage: 200MG TWICE PER DAY
     Route: 065
  2. METHOTREXATE [Suspect]
     Indication: ACUTE LYMPHOCYTIC LEUKAEMIA
     Dosage: 20MG WEEKLY
     Route: 065
  3. VINCRISTINE [Concomitant]
  4. MERCAPTOPURINE [Concomitant]

REACTIONS (1)
  - Drug interaction [Unknown]
